FAERS Safety Report 4779587-5 (Version None)
Quarter: 2005Q3

REPORT INFORMATION
  Report Type: 
  Country: None (occurrence: None)
  Receive Date: 20050927
  Receipt Date: 20050919
  Transmission Date: 20060218
  Serious: Yes (Death)
  Sender: FDA-Public Use
  Company Number: FR-JNJFOC-20050801035

PATIENT
  Age: 78 Year
  Sex: Male

DRUGS (8)
  1. REMICADE [Suspect]
     Route: 042
  2. REMICADE [Suspect]
     Indication: RHEUMATOID ARTHRITIS
     Route: 042
  3. METHOTREXATE [Suspect]
     Indication: RHEUMATOID ARTHRITIS
     Route: 065
  4. CORTICOSTEROIDS NOS [Suspect]
     Indication: UNEVALUABLE EVENT
     Route: 065
  5. CORTANCYL [Concomitant]
     Indication: RHEUMATOID ARTHRITIS
     Route: 065
     Dates: start: 19930101
  6. COVERSYL [Concomitant]
     Route: 065
  7. OMEPRAZOLE [Concomitant]
     Route: 065
  8. ELISOR [Concomitant]
     Route: 065

REACTIONS (1)
  - CARDIAC FAILURE [None]
